FAERS Safety Report 5580071-X (Version None)
Quarter: 2007Q4

REPORT INFORMATION
  Report Type: 
  Country: None (occurrence: None)
  Receive Date: 20071227
  Receipt Date: 20071227
  Transmission Date: 20080405
  Serious: Yes (Disabling)
  Sender: FDA-Public Use
  Company Number: None

PATIENT
  Age: 8 Year
  Sex: Female
  Weight: 21.3191 kg

DRUGS (2)
  1. AMANTADINE HCL [Suspect]
     Indication: INFLUENZA
     Dosage: 0NE TEASPOON 2 X DAILY PO
     Route: 048
     Dates: start: 20071218, end: 20071220
  2. PROMETHAZINE W/ CODEINE [Suspect]
     Indication: INFLUENZA
     Dosage: ONE TEASPOON EVERY 4-6 HRS PO
     Route: 048
     Dates: start: 20071218, end: 20071220

REACTIONS (4)
  - ABNORMAL BEHAVIOUR [None]
  - FORMICATION [None]
  - HALLUCINATIONS, MIXED [None]
  - INSOMNIA [None]
